FAERS Safety Report 4611843-3 (Version None)
Quarter: 2005Q1

REPORT INFORMATION
  Report Type: 
  Country: None (occurrence: None)
  Receive Date: 20050308
  Receipt Date: 20050201
  Transmission Date: 20050727
  Serious: Yes (Other)
  Sender: FDA-Public Use
  Company Number: 2005UW01791

PATIENT
  Age: 66 Year
  Sex: Female
  Weight: 90.718 kg

DRUGS (6)
  1. CRESTOR [Suspect]
     Indication: BLOOD CHOLESTEROL INCREASED
     Dosage: 10 MG PO
     Route: 048
     Dates: start: 20050117
  2. BENAZEPRIL HCL [Concomitant]
  3. LEXAPRO [Concomitant]
  4. KLONOPIN [Concomitant]
  5. ASPIRIN [Concomitant]
  6. OMEPRAZOLE [Concomitant]

REACTIONS (4)
  - ANXIETY [None]
  - BREAST DISCHARGE [None]
  - BREAST HAEMORRHAGE [None]
  - HYPERHIDROSIS [None]
